FAERS Safety Report 11169382 (Version 1)
Quarter: 2015Q2

REPORT INFORMATION
  Report Type: Spontaneous
  Country: US (occurrence: US)
  Receive Date: 20150605
  Receipt Date: 20150605
  Transmission Date: 20150821
  Serious: No
  Sender: FDA-Public Use
  Company Number: US-PFIZER INC-2015179750

PATIENT
  Age: 84 Year
  Sex: Female
  Weight: 48 kg

DRUGS (1)
  1. ADVIL [Suspect]
     Active Substance: IBUPROFEN
     Indication: PAIN
     Dosage: 200MG, TWO AT A TIME UP TO FOUR TIMES A DAY

REACTIONS (2)
  - Ear pruritus [Not Recovered/Not Resolved]
  - Ear disorder [Not Recovered/Not Resolved]
